FAERS Safety Report 12761567 (Version 3)
Quarter: 2017Q1

REPORT INFORMATION
  Report Type: Report from Study
  Country: GB (occurrence: GB)
  Receive Date: 20160920
  Receipt Date: 20170202
  Transmission Date: 20170428
  Serious: Yes (Hospitalization)
  Sender: FDA-Public Use
  Company Number: PHHO2013GB017496

PATIENT
  Age: 47 Year
  Sex: Female
  Weight: 75 kg

DRUGS (7)
  1. TYKERB [Suspect]
     Active Substance: LAPATINIB DITOSYLATE
     Indication: BREAST CANCER METASTATIC
     Dosage: 1250 MG, QD
     Route: 048
     Dates: start: 20110630
  2. CAPECITABINE. [Suspect]
     Active Substance: CAPECITABINE
     Dosage: 1500 MG/M2, CYCLIC
     Route: 048
     Dates: start: 20110723
  3. CAPECITABINE. [Suspect]
     Active Substance: CAPECITABINE
     Dosage: 1300 MG/M2, CYCLIC
     Route: 048
     Dates: start: 20130524
  4. CAPECITABINE. [Suspect]
     Active Substance: CAPECITABINE
     Dosage: UNK
     Route: 048
     Dates: start: 20131124
  5. TYKERB [Suspect]
     Active Substance: LAPATINIB DITOSYLATE
     Dosage: 1000 MG, QD
     Route: 048
     Dates: start: 20110717
  6. TYKERB [Suspect]
     Active Substance: LAPATINIB DITOSYLATE
     Dosage: UNK
     Route: 048
     Dates: start: 20131124
  7. CAPECITABINE. [Suspect]
     Active Substance: CAPECITABINE
     Indication: BREAST CANCER METASTATIC
     Dosage: 2000 MG/M2, CYCLIC
     Route: 048
     Dates: start: 20110630

REACTIONS (1)
  - Upper respiratory tract infection [Recovered/Resolved]

NARRATIVE: CASE EVENT DATE: 20131120
